FAERS Safety Report 14971487 (Version 1)
Quarter: 2018Q2

REPORT INFORMATION
  Report Type: Spontaneous
  Country: US (occurrence: US)
  Receive Date: 20180604
  Receipt Date: 20180604
  Transmission Date: 20180711
  Serious: No
  Sender: FDA-Public Use
  Company Number: US-ALEXION PHARMACEUTICALS INC.-A201806741

PATIENT
  Age: 30 Year
  Sex: Male

DRUGS (2)
  1. SOLIRIS [Suspect]
     Active Substance: ECULIZUMAB
     Dosage: 900 MG, Q2W
     Route: 042
     Dates: start: 20090218
  2. SOLIRIS [Suspect]
     Active Substance: ECULIZUMAB
     Indication: PAROXYSMAL NOCTURNAL HAEMOGLOBINURIA
     Dosage: UNK
     Route: 042

REACTIONS (7)
  - Chromaturia [Not Recovered/Not Resolved]
  - Haemolysis [Not Recovered/Not Resolved]
  - Stress [Not Recovered/Not Resolved]
  - Inappropriate schedule of drug administration [Unknown]
  - Abdominal pain [Not Recovered/Not Resolved]
  - Insomnia [Not Recovered/Not Resolved]
  - Hiccups [Not Recovered/Not Resolved]

NARRATIVE: CASE EVENT DATE: 20180523
